FAERS Safety Report 19574065 (Version 1)
Quarter: 2021Q3

REPORT INFORMATION
  Report Type: Spontaneous
  Country: US (occurrence: US)
  Receive Date: 20210718
  Receipt Date: 20210718
  Transmission Date: 20211014
  Serious: Yes (Hospitalization, Other)
  Sender: FDA-Public Use
  Company Number: US-MSNLABS-2021MSNLIT00242

PATIENT

DRUGS (5)
  1. THIOTEPA INJECTION 100 MG/ML [Suspect]
     Active Substance: THIOTEPA
     Dosage: AS CONDITIONING CHEMOTHERAPY
     Route: 065
  2. CYCLOPHOSPHAMIDE. [Concomitant]
     Active Substance: CYCLOPHOSPHAMIDE
     Indication: DIFFUSE LARGE B-CELL LYMPHOMA
     Route: 065
  3. BUSULFAN. [Concomitant]
     Active Substance: BUSULFAN
     Indication: DIFFUSE LARGE B-CELL LYMPHOMA
     Route: 065
  4. CYTARABINE. [Concomitant]
     Active Substance: CYTARABINE
     Indication: DIFFUSE LARGE B-CELL LYMPHOMA
     Dosage: COMPLETED TWO INITIAL CYCLES
     Route: 065
  5. THIOTEPA INJECTION 100 MG/ML [Suspect]
     Active Substance: THIOTEPA
     Indication: DIFFUSE LARGE B-CELL LYMPHOMA
     Route: 065

REACTIONS (5)
  - Toxic erythema of chemotherapy [Recovering/Resolving]
  - Pancytopenia [Unknown]
  - Intertrigo [Recovering/Resolving]
  - Hepatic function abnormal [Unknown]
  - Mucosal inflammation [Unknown]
